FAERS Safety Report 7685153-4 (Version None)
Quarter: 2011Q3

REPORT INFORMATION
  Report Type: 
  Country: None (occurrence: None)
  Receive Date: 20110816
  Receipt Date: 20110808
  Transmission Date: 20111222
  Serious: Yes (Other)
  Sender: FDA-Public Use
  Company Number: US-ASTELLAS-2011US004342

PATIENT
  Age: 40 Year
  Sex: Female

DRUGS (2)
  1. VIBATIV [Suspect]
     Indication: STAPHYLOCOCCAL INFECTION
     Dosage: UNK
     Route: 042
     Dates: start: 20110627, end: 20110627
  2. NAPROXEN [Concomitant]
     Indication: PRODUCT USED FOR UNKNOWN INDICATION
     Dosage: UNK
     Route: 065

REACTIONS (3)
  - DRUG HYPERSENSITIVITY [None]
  - ANAPHYLACTIC REACTION [None]
  - DYSPNOEA [None]
